FAERS Safety Report 9123713 (Version 3)
Quarter: 2013Q1

REPORT INFORMATION
  Report Type: Spontaneous
  Country: CA (occurrence: CA)
  Receive Date: 20130227
  Receipt Date: 20130306
  Transmission Date: 20140127
  Serious: Yes (Hospitalization)
  Sender: FDA-Public Use
  Company Number: CA-ROCHE-1194680

PATIENT
  Age: 71 Year
  Sex: Female

DRUGS (2)
  1. XOLAIR [Suspect]
     Indication: ASTHMA
     Route: 058
     Dates: start: 20121108
  2. XOLAIR [Suspect]
     Route: 058
     Dates: start: 20130130

REACTIONS (7)
  - Pyrexia [Unknown]
  - Headache [Unknown]
  - Fatigue [Unknown]
  - Musculoskeletal pain [Unknown]
  - Chest pain [Unknown]
  - Wheezing [Unknown]
  - Respiratory disorder [Unknown]
